FAERS Safety Report 4405210-5 (Version None)
Quarter: 2004Q3

REPORT INFORMATION
  Report Type: 
  Country: None (occurrence: None)
  Receive Date: 20040722
  Receipt Date: 20040722
  Transmission Date: 20050211
  Serious: Yes (Hospitalization, Other)
  Sender: FDA-Public Use
  Company Number: None

PATIENT
  Age: 73 Year
  Sex: Male
  Weight: 72.6 kg

DRUGS (8)
  1. SIMVASTATIN [Suspect]
     Indication: HYPERLIPIDAEMIA
  2. DILTIAZEM [Concomitant]
  3. ARICEPT [Concomitant]
  4. FOSINOPRIL SODIUM [Concomitant]
  5. LASIX [Concomitant]
  6. GLIPIZIDE [Concomitant]
  7. TIMOLOL MALEATE [Concomitant]
  8. TROVAPROST [Concomitant]

REACTIONS (5)
  - ABDOMINAL PAIN [None]
  - DIARRHOEA [None]
  - HEPATITIS [None]
  - HEPATOTOXICITY [None]
  - RENAL FAILURE ACUTE [None]
